FAERS Safety Report 8286590-X (Version None)
Quarter: 2012Q2

REPORT INFORMATION
  Report Type: 
  Country: None (occurrence: None)
  Receive Date: 20120416
  Receipt Date: 20120406
  Transmission Date: 20120825
  Serious: Yes (Hospitalization, Other)
  Sender: FDA-Public Use
  Company Number: US-BAYER-2012-014515

PATIENT
  Age: 17 Year
  Sex: Female

DRUGS (6)
  1. GEODON [Concomitant]
     Indication: BIPOLAR DISORDER
     Dosage: 80 MG, HS
     Route: 048
  2. ABILIFY [Concomitant]
     Dosage: 5 MG, UNK
     Route: 048
  3. YAZ [Suspect]
     Indication: ACNE
     Dosage: UNK
     Dates: start: 20070101, end: 20100310
  4. YAZ [Suspect]
     Indication: CONTRACEPTION
  5. ADDERALL XR 10 [Concomitant]
     Dosage: 20 MG, QD
     Route: 048
  6. YASMIN [Suspect]
     Dosage: UNK
     Dates: start: 20070101, end: 20100310

REACTIONS (2)
  - THROMBOSIS [None]
  - PULMONARY EMBOLISM [None]
